FAERS Safety Report 25304514 (Version 1)
Quarter: 2025Q2

REPORT INFORMATION
  Report Type: Spontaneous
  Country: US (occurrence: US)
  Receive Date: 20250513
  Receipt Date: 20250513
  Transmission Date: 20250716
  Serious: No
  Sender: LUPIN
  Company Number: US-LUPIN PHARMACEUTICALS INC.-2025-03956

PATIENT
  Age: 85 Year
  Weight: 76 kg

DRUGS (1)
  1. GAVILAX [Suspect]
     Active Substance: POLYETHYLENE GLYCOL 3350
     Indication: Constipation
     Dosage: UNK UNK, QD, 1 DOSE
     Route: 065

REACTIONS (2)
  - Product use issue [Unknown]
  - No adverse event [Unknown]
